FAERS Safety Report 7544018-9 (Version None)
Quarter: 2011Q2

REPORT INFORMATION
  Report Type: 
  Country: None (occurrence: None)
  Receive Date: 20110613
  Receipt Date: 20041115
  Transmission Date: 20111010
  Serious: Yes (Other)
  Sender: FDA-Public Use
  Company Number: PHHO2004NL16291

PATIENT
  Age: 72 Year
  Sex: Male

DRUGS (2)
  1. APROVEL [Concomitant]
     Dosage: UNKNOWN
  2. DIOVAN HCT [Suspect]
     Dosage: UNKNOWN

REACTIONS (1)
  - ATRIAL FIBRILLATION [None]
